FAERS Safety Report 7330008-8 (Version None)
Quarter: 2011Q1

REPORT INFORMATION
  Report Type: 
  Country: None (occurrence: None)
  Receive Date: 20110303
  Receipt Date: 20110217
  Transmission Date: 20110831
  Serious: Yes (Hospitalization)
  Sender: FDA-Public Use
  Company Number: US-GENENTECH-312405

PATIENT
  Sex: Female
  Weight: 44 kg

DRUGS (16)
  1. HOKUNALIN [Concomitant]
     Indication: PRODUCT USED FOR UNKNOWN INDICATION
     Dosage: UNK
     Dates: start: 20100207
  2. UNIPHYL [Concomitant]
     Indication: PRODUCT USED FOR UNKNOWN INDICATION
     Dosage: UNK
     Dates: start: 20100207
  3. MUCODYNE [Concomitant]
     Indication: PRODUCT USED FOR UNKNOWN INDICATION
     Dosage: UNK
     Dates: start: 20100207
  4. ONON [Concomitant]
     Indication: PRODUCT USED FOR UNKNOWN INDICATION
     Dosage: UNK
     Dates: start: 20100207
  5. TAKEPRON [Concomitant]
     Indication: PRODUCT USED FOR UNKNOWN INDICATION
     Dosage: UNK
     Dates: start: 20100627
  6. OMALIZUMAB [Suspect]
     Dosage: 150 MG, 1/MONTH
     Route: 058
     Dates: start: 20100404
  7. FLUTIDE [Concomitant]
     Indication: PRODUCT USED FOR UNKNOWN INDICATION
     Dosage: UNK
     Dates: start: 20100207
  8. GASTER D [Concomitant]
     Indication: PRODUCT USED FOR UNKNOWN INDICATION
     Dosage: UNK
     Dates: start: 20100207
  9. ROHYPNOL [Concomitant]
     Indication: PRODUCT USED FOR UNKNOWN INDICATION
     Dosage: UNK
     Dates: start: 20100207
  10. OMALIZUMAB [Suspect]
     Dosage: 150 MG, 1/MONTH
     Route: 058
     Dates: start: 20100627
  11. PREDONINE [Concomitant]
     Indication: PRODUCT USED FOR UNKNOWN INDICATION
     Dosage: UNK
  12. OMALIZUMAB [Suspect]
     Indication: ASTHMA
     Dosage: 150 MG, 1/MONTH
     Route: 058
     Dates: start: 20100207, end: 20100627
  13. OMALIZUMAB [Suspect]
     Dosage: 150 MG, 1/MONTH
     Route: 058
     Dates: start: 20100530
  14. PREDONINE [Concomitant]
     Dosage: UNK
     Dates: start: 20100207
  15. ALESION [Concomitant]
     Indication: PRODUCT USED FOR UNKNOWN INDICATION
     Dosage: UNK
     Dates: start: 20100207
  16. HERBESSER [Concomitant]
     Indication: PRODUCT USED FOR UNKNOWN INDICATION
     Dosage: UNK
     Dates: start: 20100207

REACTIONS (1)
  - ASTHMA [None]
